FAERS Safety Report 10237637 (Version 2)
Quarter: 2014Q2

REPORT INFORMATION
  Report Type: Spontaneous
  Country: CH (occurrence: CH)
  Receive Date: 20140616
  Receipt Date: 20140626
  Transmission Date: 20141212
  Serious: Yes (Hospitalization)
  Sender: FDA-Public Use
  Company Number: CH-ROCHE-1417941

PATIENT
  Age: 24 Year
  Sex: Male

DRUGS (7)
  1. CELLCEPT [Suspect]
     Indication: PROPHYLAXIS AGAINST TRANSPLANT REJECTION
     Route: 048
     Dates: start: 2013, end: 201405
  2. PRADIF [Concomitant]
     Indication: EAGLE BARRETT SYNDROME
     Route: 048
  3. BACTRIM [Concomitant]
     Indication: ANTIBIOTIC PROPHYLAXIS
     Route: 048
  4. BACTRIM [Concomitant]
     Route: 048
  5. PROGRAF [Concomitant]
     Indication: PROPHYLAXIS AGAINST TRANSPLANT REJECTION
     Route: 048
  6. SPIRICORT [Concomitant]
     Indication: PROPHYLAXIS AGAINST TRANSPLANT REJECTION
     Dosage: 2.5 PER 1 DAY
     Route: 048
  7. LISINOPRIL [Concomitant]
     Indication: RENAL TRANSPLANT
     Dosage: 0.5 PER 1 DAY
     Route: 048

REACTIONS (8)
  - Colitis [Recovered/Resolved]
  - Diarrhoea [Recovered/Resolved]
  - Pyrexia [Recovered/Resolved]
  - Abdominal pain upper [Recovered/Resolved]
  - Decreased appetite [Recovered/Resolved]
  - Abnormal loss of weight [Recovered/Resolved]
  - Asthenia [Recovered/Resolved]
  - Vomiting [Recovered/Resolved]
